FAERS Safety Report 9712212 (Version 1)
Quarter: 2013Q4

REPORT INFORMATION
  Report Type: Spontaneous
  Country: US (occurrence: US)
  Receive Date: 20131126
  Receipt Date: 20131126
  Transmission Date: 20140711
  Serious: No
  Sender: FDA-Public Use
  Company Number: US-BRISTOL-MYERS SQUIBB COMPANY-19146992

PATIENT
  Age: 59 Year
  Sex: Female

DRUGS (3)
  1. BYDUREON [Suspect]
     Dosage: 2ND DOSE: 26JUL2013
     Dates: start: 20130719
  2. METFORMIN [Concomitant]
     Indication: DIABETES MELLITUS
  3. ACTOS [Concomitant]
     Indication: DIABETES MELLITUS

REACTIONS (3)
  - Muscle tightness [Recovered/Resolved]
  - Dizziness [Not Recovered/Not Resolved]
  - Headache [Recovered/Resolved]
